FAERS Safety Report 25897227 (Version 2)
Quarter: 2025Q4

REPORT INFORMATION
  Report Type: Spontaneous
  Country: US (occurrence: US)
  Receive Date: 20251008
  Receipt Date: 20251202
  Transmission Date: 20260118
  Serious: No
  Sender: INCYTE
  Company Number: US-EVENT-004378

PATIENT

DRUGS (1)
  1. OPZELURA [Suspect]
     Active Substance: RUXOLITINIB PHOSPHATE
     Indication: Vitiligo
     Dosage: UNK, BID
     Route: 065

REACTIONS (4)
  - Skin exfoliation [Not Recovered/Not Resolved]
  - Product physical consistency issue [Unknown]
  - Product dose omission issue [Unknown]
  - Off label use [Unknown]
